FAERS Safety Report 15158571 (Version 1)
Quarter: 2018Q3

REPORT INFORMATION
  Report Type: Spontaneous
  Country: US (occurrence: US)
  Receive Date: 20180620
  Receipt Date: 20180620
  Transmission Date: 20181010
  Serious: No
  Sender: FDA-Public Use
  Company Number: None

PATIENT
  Age: 37 Year
  Sex: Female

DRUGS (1)
  1. MAVYRET [Suspect]
     Active Substance: GLECAPREVIR\PIBRENTASVIR
     Dates: start: 20180620, end: 20180620

REACTIONS (4)
  - Gastritis [None]
  - Gallbladder disorder [None]
  - Gastrointestinal inflammation [None]
  - Cholelithiasis [None]

NARRATIVE: CASE EVENT DATE: 20180620
